FAERS Safety Report 4646260-3 (Version None)
Quarter: 2005Q2

REPORT INFORMATION
  Report Type: 
  Country: None (occurrence: None)
  Receive Date: 20050427
  Receipt Date: 20050421
  Transmission Date: 20051028
  Serious: Yes (Hospitalization)
  Sender: FDA-Public Use
  Company Number: US-ROCHE-402590

PATIENT
  Age: 58 Year
  Sex: Male
  Weight: 86.6 kg

DRUGS (18)
  1. RIBAVIRIN [Suspect]
     Dosage: LAST DOSE PRIOR TO SAE TAKEN ON 11 APRIL 2005.
     Route: 048
     Dates: start: 20050311
  2. PEG-INTERFERON ALFA 2A (RO 25-8310) [Suspect]
     Dosage: LAST DOSE PRIOR TO SAE TAKEN ON 08 APRIL 2005.
     Route: 058
     Dates: start: 20050311
  3. ALLOPURINOL [Concomitant]
     Dates: start: 20050321
  4. AMITRIPTYLINE HCL [Concomitant]
  5. ASPIRIN [Concomitant]
  6. ATENOLOL [Concomitant]
  7. BUPROPION HCL [Concomitant]
  8. CLONIDINE [Concomitant]
  9. DOCUSATE NA [Concomitant]
     Dates: start: 20050408
  10. EPOETIN ALFA [Concomitant]
     Dates: start: 20050401
  11. FOSINOPRIL SODIUM [Concomitant]
  12. FUROSEMIDE [Concomitant]
  13. NPH INSULIN [Concomitant]
  14. REGULAR INSULIN [Concomitant]
  15. METOCLOPRAMIDE HCL [Concomitant]
     Dates: start: 20050408
  16. OMEPRAZOLE [Concomitant]
     Dates: start: 20050407
  17. PENTOXIFYLLINE [Concomitant]
  18. PSYLLIUM [Concomitant]
     Dates: start: 20050408

REACTIONS (8)
  - BLOOD GLUCOSE INCREASED [None]
  - CONSTIPATION [None]
  - DIZZINESS [None]
  - HAEMATOCRIT DECREASED [None]
  - HAEMOGLOBIN DECREASED [None]
  - ORTHOSTATIC HYPOTENSION [None]
  - VISION BLURRED [None]
  - VOMITING [None]
